FAERS Safety Report 14984161 (Version 1)
Quarter: 2018Q2

REPORT INFORMATION
  Report Type: Spontaneous
  Country: US (occurrence: US)
  Receive Date: 20180517
  Receipt Date: 20180517
  Transmission Date: 20180711
  Serious: Yes (Other)
  Sender: FDA-Public Use
  Company Number: None

PATIENT
  Age: 56 Year
  Sex: Male
  Weight: 86.85 kg

DRUGS (2)
  1. ALBUTEROL. [Suspect]
     Active Substance: ALBUTEROL
     Indication: DYSPNOEA
     Route: 048
     Dates: start: 20180501, end: 20180516
  2. PROVENTIL [Concomitant]
     Active Substance: ALBUTEROL
     Dates: start: 20180101, end: 20180430

REACTIONS (1)
  - Device stimulation issue [None]

NARRATIVE: CASE EVENT DATE: 20180501
